FAERS Safety Report 7312132-9 (Version None)
Quarter: 2011Q1

REPORT INFORMATION
  Report Type: 
  Country: None (occurrence: None)
  Receive Date: 20110224
  Receipt Date: 20110222
  Transmission Date: 20110831
  Serious: Yes (Hospitalization, Other)
  Sender: FDA-Public Use
  Company Number: US-PFIZER INC-2010144954

PATIENT
  Sex: Female

DRUGS (3)
  1. HYDROCODONE [Concomitant]
     Indication: INTERVERTEBRAL DISC DEGENERATION
     Dosage: UNK
     Dates: start: 20050101, end: 20090101
  2. CHANTIX [Suspect]
     Indication: SMOKING CESSATION THERAPY
     Dosage: STARTER PACK
     Route: 048
     Dates: start: 20080914, end: 20081001
  3. OXYCODONE HCL AND ACETAMINOPHEN [Concomitant]
     Indication: INTERVERTEBRAL DISC DEGENERATION
     Dosage: UNK
     Dates: start: 20060101

REACTIONS (6)
  - HOMICIDAL IDEATION [None]
  - SUICIDE ATTEMPT [None]
  - ANXIETY [None]
  - HALLUCINATION, AUDITORY [None]
  - DEPRESSION [None]
  - NIGHTMARE [None]
